FAERS Safety Report 25147464 (Version 2)
Quarter: 2025Q2

REPORT INFORMATION
  Report Type: Report from Study
  Country: US (occurrence: US)
  Receive Date: 20250402
  Receipt Date: 20250521
  Transmission Date: 20250717
  Serious: No
  Sender: SUNOVION
  Company Number: US-SUMITOMO PHARMA SWITZERLAND GMBH-2025SPA002675

PATIENT

DRUGS (3)
  1. ORGOVYX [Suspect]
     Active Substance: RELUGOLIX
     Indication: Prostate cancer
     Route: 048
  2. ORGOVYX [Suspect]
     Active Substance: RELUGOLIX
     Dosage: 120 MG, QD
     Route: 048
     Dates: start: 20250204
  3. XTANDI [Concomitant]
     Active Substance: ENZALUTAMIDE
     Indication: Product used for unknown indication
     Route: 065

REACTIONS (9)
  - Pain [Unknown]
  - Feeling abnormal [Unknown]
  - Dry mouth [Unknown]
  - Tongue discomfort [Unknown]
  - Hot flush [Unknown]
  - Hyperhidrosis [Unknown]
  - Insomnia [Unknown]
  - Arthralgia [Unknown]
  - Fatigue [Unknown]
